FAERS Safety Report 19391967 (Version 5)
Quarter: 2021Q2

REPORT INFORMATION
  Report Type: Spontaneous
  Country: US (occurrence: CN)
  Receive Date: 20210608
  Receipt Date: 20210625
  Transmission Date: 20210717
  Serious: Yes (Death, Other)
  Sender: FDA-Public Use
  Company Number: CN-B.I. PHARMACEUTICALS,INC./RIDGEFIELD-2021-BI-108302

PATIENT
  Sex: Male

DRUGS (2)
  1. GILOTRIF [Suspect]
     Active Substance: AFATINIB
     Indication: ADENOCARCINOMA GASTRIC
     Route: 048
     Dates: start: 201808
  2. GILOTRIF [Suspect]
     Active Substance: AFATINIB
     Indication: EGFR GENE MUTATION

REACTIONS (11)
  - Abdominal pain upper [Unknown]
  - Abdominal distension [Unknown]
  - Metastases to adrenals [Unknown]
  - Off label use [Unknown]
  - Malignant neoplasm progression [Unknown]
  - Biliary tract infection [Fatal]
  - Hepatic encephalopathy [Fatal]
  - Jaundice cholestatic [Fatal]
  - Pneumonia [Fatal]
  - Metastases to liver [Unknown]
  - Therapeutic product effect incomplete [Unknown]
